FAERS Safety Report 17863406 (Version 1)
Quarter: 2020Q2

REPORT INFORMATION
  Report Type: Report from Study
  Country: None (occurrence: CA)
  Receive Date: 20200605
  Receipt Date: 20200605
  Transmission Date: 20200714
  Serious: Yes (Other)
  Sender: FDA-Public Use
  Company Number: CA-ABBVIE-20K-028-3430011-00

PATIENT
  Sex: Female

DRUGS (1)
  1. LUPRON DEPOT [Suspect]
     Active Substance: LEUPROLIDE ACETATE
     Indication: OVARIAN CANCER
     Route: 030
     Dates: start: 2007

REACTIONS (3)
  - Neoplasm malignant [Not Recovered/Not Resolved]
  - Blood testosterone increased [Unknown]
  - Off label use [Unknown]

NARRATIVE: CASE EVENT DATE: 2020
